FAERS Safety Report 14923414 (Version 2)
Quarter: 2018Q2

REPORT INFORMATION
  Report Type: Report from Study
  Country: IT (occurrence: IT)
  Receive Date: 20180522
  Receipt Date: 20180526
  Transmission Date: 20180711
  Serious: Yes (Other)
  Sender: FDA-Public Use
  Company Number: IT-ROCHE-2126635

PATIENT
  Age: 39 Year
  Sex: Female

DRUGS (7)
  1. EUTIROX [Concomitant]
     Active Substance: LEVOTHYROXINE SODIUM
     Route: 065
  2. GABAPENTIN. [Concomitant]
     Active Substance: GABAPENTIN
     Route: 065
  3. RIVOTRIL [Suspect]
     Active Substance: CLONAZEPAM
     Indication: EPILEPSY
     Dosage: 2.5 MG/ML
     Route: 048
  4. CLOZAPINA [Concomitant]
     Active Substance: CLOZAPINE
     Route: 065
  5. ZOLOFT [Concomitant]
     Active Substance: SERTRALINE HYDROCHLORIDE
     Route: 065
  6. ALCOVER [Interacting]
     Active Substance: SODIUM OXYBATE
     Indication: ALCOHOLISM
     Route: 048
  7. CARBOLITHIUM [Concomitant]
     Active Substance: LITHIUM CARBONATE
     Route: 065

REACTIONS (6)
  - Coma scale abnormal [Recovering/Resolving]
  - Loss of consciousness [Recovering/Resolving]
  - Respiration abnormal [Recovering/Resolving]
  - Drug abuse [Unknown]
  - Foaming at mouth [Recovering/Resolving]
  - Alcohol interaction [Unknown]

NARRATIVE: CASE EVENT DATE: 20180505
